FAERS Safety Report 25707616 (Version 1)
Quarter: 2025Q3

REPORT INFORMATION
  Report Type: Spontaneous
  Country: EU (occurrence: EU)
  Receive Date: 20250820
  Receipt Date: 20250820
  Transmission Date: 20251021
  Serious: Yes (Hospitalization)
  Sender: MYLAN
  Company Number: None

PATIENT
  Age: 29 Year
  Sex: Male
  Weight: 74 kg

DRUGS (6)
  1. ETOPOSIDE [Suspect]
     Active Substance: ETOPOSIDE
     Indication: Testicular seminoma (pure)
     Dosage: 200 MILLIGRAM, QD, C1
     Dates: start: 20250612, end: 20250616
  2. ETOPOSIDE [Suspect]
     Active Substance: ETOPOSIDE
     Dosage: 200 MILLIGRAM, QD, C2
     Dates: start: 20250703, end: 20250707
  3. CISPLATIN [Suspect]
     Active Substance: CISPLATIN
     Indication: Testicular seminoma (pure)
     Dosage: 40 MILLIGRAM, QD, C1
     Dates: start: 20250612, end: 20250616
  4. CISPLATIN [Suspect]
     Active Substance: CISPLATIN
     Dosage: 40.5 MILLIGRAM, QD, C2
     Dates: start: 20250703, end: 20250707
  5. BLEOMYCIN SULFATE [Suspect]
     Active Substance: BLEOMYCIN SULFATE
     Indication: Testicular seminoma (pure)
     Dates: start: 20250612, end: 20250626
  6. BLEOMYCIN SULFATE [Suspect]
     Active Substance: BLEOMYCIN SULFATE
     Dosage: 30 MILLIGRAM, QD, C2 J1
     Dates: start: 20250703, end: 20250703

REACTIONS (2)
  - Duodenal ulcer [Recovered/Resolved]
  - Small intestinal ulcer perforation [Recovered/Resolved]

NARRATIVE: CASE EVENT DATE: 20250708
